FAERS Safety Report 4437209-7 (Version None)
Quarter: 2004Q3

REPORT INFORMATION
  Report Type: 
  Country: None (occurrence: None)
  Receive Date: 20040726
  Receipt Date: 20040304
  Transmission Date: 20050211
  Serious: No
  Sender: FDA-Public Use
  Company Number: USA040360966

PATIENT
  Age: 81 Year
  Sex: Female
  Weight: 68 kg

DRUGS (4)
  1. FORTEO [Suspect]
     Dates: start: 20040226
  2. TOPROL-XL [Concomitant]
  3. INDAPAMIDE [Concomitant]
  4. SYNTHROID [Concomitant]

REACTIONS (2)
  - INJECTION SITE HAEMORRHAGE [None]
  - SKIN LACERATION [None]
